FAERS Safety Report 25964023 (Version 1)
Quarter: 2025Q4

REPORT INFORMATION
  Report Type: Report from Study
  Country: US (occurrence: US)
  Receive Date: 20251027
  Receipt Date: 20251027
  Transmission Date: 20260118
  Serious: Yes (Hospitalization)
  Sender: TEVA
  Company Number: US-TEVA-VS-3384526

PATIENT
  Age: 38 Year
  Sex: Female

DRUGS (14)
  1. AUSTEDO [Suspect]
     Active Substance: DEUTETRABENAZINE
     Indication: Tardive dyskinesia
     Dosage: FORM STRENGTH: 9 MG AND 6 MG
     Route: 048
     Dates: end: 20251009
  2. SUBOXONE [Concomitant]
     Active Substance: BUPRENORPHINE HYDROCHLORIDE\NALOXONE HYDROCHLORIDE
     Indication: Product used for unknown indication
  3. SUMATRIPTAN [Concomitant]
     Active Substance: SUMATRIPTAN
     Indication: Product used for unknown indication
  4. SYNTHROID [Concomitant]
     Active Substance: LEVOTHYROXINE SODIUM
     Indication: Product used for unknown indication
  5. ATORVASTATIN [Concomitant]
     Active Substance: ATORVASTATIN
     Indication: Product used for unknown indication
  6. SUBLOCADE [Concomitant]
     Active Substance: BUPRENORPHINE
     Indication: Product used for unknown indication
  7. TRAZODONE [Concomitant]
     Active Substance: TRAZODONE HYDROCHLORIDE
     Indication: Product used for unknown indication
  8. ATOMOXETINE [Concomitant]
     Active Substance: ATOMOXETINE
     Indication: Product used for unknown indication
  9. PROPRANOLOL [Concomitant]
     Active Substance: PROPRANOLOL HYDROCHLORIDE
     Indication: Product used for unknown indication
  10. VRAYLAR [Concomitant]
     Active Substance: CARIPRAZINE
     Indication: Product used for unknown indication
  11. CLONIDINE [Concomitant]
     Active Substance: CLONIDINE
     Indication: Product used for unknown indication
  12. ESZOPICLONE [Concomitant]
     Active Substance: ESZOPICLONE
     Indication: Product used for unknown indication
  13. GABAPENTIN [Concomitant]
     Active Substance: GABAPENTIN
     Indication: Product used for unknown indication
  14. ONDANSETRON [Concomitant]
     Active Substance: ONDANSETRON
     Indication: Product used for unknown indication

REACTIONS (1)
  - Gallbladder disorder [Recovering/Resolving]
